FAERS Safety Report 9231515 (Version 1)
Quarter: 2013Q2

REPORT INFORMATION
  Report Type: Spontaneous
  Country: US (occurrence: US)
  Receive Date: 20130415
  Receipt Date: 20130415
  Transmission Date: 20140414
  Serious: Yes (Hospitalization, Other)
  Sender: FDA-Public Use
  Company Number: US-BAXTER-2013BAX011817

PATIENT
  Age: 88 Year
  Sex: Female

DRUGS (1)
  1. DIANEAL LOW CALCIUM [Suspect]
     Indication: PERITONEAL DIALYSIS
     Route: 033
     Dates: start: 201007

REACTIONS (4)
  - Cough [Recovering/Resolving]
  - Respiratory distress [Recovering/Resolving]
  - Enterococcal sepsis [Recovering/Resolving]
  - Peritonitis bacterial [Recovering/Resolving]
